FAERS Safety Report 8153916-7 (Version None)
Quarter: 2012Q1

REPORT INFORMATION
  Report Type: 
  Country: None (occurrence: None)
  Receive Date: 20120221
  Receipt Date: 20120213
  Transmission Date: 20120608
  Serious: Yes (Other)
  Sender: FDA-Public Use
  Company Number: GB-ABBOTT-12P-167-0904730-00

PATIENT
  Age: 2 Year
  Sex: Male

DRUGS (1)
  1. VALPROATE SODIUM [Suspect]
     Indication: GRAND MAL CONVULSION
     Route: 048
     Dates: start: 20111101

REACTIONS (2)
  - ELECTROENCEPHALOGRAM ABNORMAL [None]
  - MYOCLONUS [None]
